FAERS Safety Report 9163925 (Version 1)
Quarter: 2013Q1

REPORT INFORMATION
  Report Type: Spontaneous
  Country: US (occurrence: US)
  Receive Date: 20130314
  Receipt Date: 20130314
  Transmission Date: 20140127
  Serious: Yes (Other)
  Sender: FDA-Public Use
  Company Number: CHPA2012US014705

PATIENT
  Age: 57 Year
  Sex: Female

DRUGS (4)
  1. EXCEDRIN ES BACK + BODY [Suspect]
     Indication: PAIN
     Dosage: RECOMMENDED DOSAGE, PRN
     Route: 048
     Dates: start: 2009, end: 201201
  2. EXCEDRIN PM [Suspect]
     Dosage: RECOMMENDED DOSAGE, PRN
     Route: 048
     Dates: start: 2009
  3. EXCEDRIN EXTRA STRENGTH [Suspect]
     Dosage: RECOMMENDED, PRN
     Route: 048
     Dates: start: 2009, end: 201201
  4. EXCEDRIN MIGRAINE [Suspect]
     Dosage: RECOMMENDED DOSAGE, PRN
     Dates: start: 2009

REACTIONS (6)
  - Sinusitis [Not Recovered/Not Resolved]
  - Sinus headache [Not Recovered/Not Resolved]
  - Photophobia [Not Recovered/Not Resolved]
  - Malaise [Recovered/Resolved]
  - Hypoaesthesia [Not Recovered/Not Resolved]
  - Nausea [Not Recovered/Not Resolved]
